FAERS Safety Report 18261996 (Version 1)
Quarter: 2020Q3

REPORT INFORMATION
  Report Type: Spontaneous
  Country: HK (occurrence: HK)
  Receive Date: 20200914
  Receipt Date: 20200914
  Transmission Date: 20201103
  Serious: Yes (Other)
  Sender: FDA-Public Use
  Company Number: NVSC2020HK248127

PATIENT
  Age: 34 Year
  Sex: Male

DRUGS (6)
  1. REVOLADE [Suspect]
     Active Substance: ELTROMBOPAG
     Dosage: 300 MG, QD (44 WEEKS)
     Route: 065
  2. ROMIPLOSTIM [Suspect]
     Active Substance: ROMIPLOSTIM
     Dosage: 30 UG, QW
     Route: 065
  3. REVOLADE [Suspect]
     Active Substance: ELTROMBOPAG
     Dosage: 175 MG, QD (8 WEEKS)
     Route: 065
  4. REVOLADE [Suspect]
     Active Substance: ELTROMBOPAG
     Indication: APLASTIC ANAEMIA
     Dosage: 100 MG, QD
     Route: 065
  5. ROMIPLOSTIM [Suspect]
     Active Substance: ROMIPLOSTIM
     Indication: PRODUCT USED FOR UNKNOWN INDICATION
     Dosage: 20 UG, QW
     Route: 065
  6. REVOLADE [Suspect]
     Active Substance: ELTROMBOPAG
     Dosage: 150 MG, QD (7 WEEKS)
     Route: 065

REACTIONS (5)
  - Drug ineffective [Unknown]
  - Transaminases increased [Unknown]
  - Acute myeloid leukaemia [Unknown]
  - Dyspepsia [Unknown]
  - Gastritis [Unknown]
